FAERS Safety Report 9748366 (Version 1)
Quarter: 2013Q4

REPORT INFORMATION
  Report Type: Spontaneous
  Country: US (occurrence: US)
  Receive Date: 20131212
  Receipt Date: 20131212
  Transmission Date: 20140711
  Serious: No
  Sender: FDA-Public Use
  Company Number: US-JNJFOC-20131200885

PATIENT
  Age: 4 Decade
  Sex: Female

DRUGS (4)
  1. INVEGA SUSTENNA [Suspect]
     Indication: POST-TRAUMATIC STRESS DISORDER
     Route: 030
  2. INVEGA SUSTENNA [Suspect]
     Indication: BIPOLAR DISORDER
     Route: 030
  3. INDERAL [Concomitant]
     Indication: INJURY
  4. COGENTIN [Concomitant]
     Indication: INJURY

REACTIONS (2)
  - Galactorrhoea [Unknown]
  - Off label use [Unknown]
